FAERS Safety Report 10967751 (Version 1)
Quarter: 2015Q1

REPORT INFORMATION
  Report Type: Spontaneous
  Country: US (occurrence: None)
  Receive Date: 20150226
  Receipt Date: 20150226
  Transmission Date: 20150721
  Serious: No
  Sender: FDA-Public Use
  Company Number: TPA2010A04797

PATIENT
  Age: 58 Year
  Sex: Male
  Weight: 97.52 kg

DRUGS (7)
  1. CELEBREX [Concomitant]
     Active Substance: CELECOXIB
  2. DIOVAN [Concomitant]
     Active Substance: VALSARTAN
  3. MULTIVITAMINS [Concomitant]
     Active Substance: VITAMINS
  4. ULORIC [Suspect]
     Active Substance: FEBUXOSTAT
     Indication: BLOOD URIC ACID INCREASED
     Route: 048
     Dates: start: 20100816
  5. INDOMETHACIN. [Concomitant]
     Active Substance: INDOMETHACIN
  6. OMEGA 3 [Concomitant]
     Active Substance: OMEGA-3 FATTY ACIDS
  7. NEXIUM [Concomitant]
     Active Substance: ESOMEPRAZOLE MAGNESIUM

REACTIONS (1)
  - Visual impairment [None]

NARRATIVE: CASE EVENT DATE: 20100827
